FAERS Safety Report 22141304 (Version 5)
Quarter: 2023Q2

REPORT INFORMATION
  Report Type: Spontaneous
  Country: SE (occurrence: SE)
  Receive Date: 20230327
  Receipt Date: 20230525
  Transmission Date: 20230721
  Serious: No
  Sender: FDA-Public Use
  Company Number: SE-PFIZER INC-202300116227

PATIENT
  Age: 46 Year
  Sex: Female
  Weight: 65 kg

DRUGS (8)
  1. FRAGMIN [Suspect]
     Active Substance: DALTEPARIN SODIUM
     Indication: Thrombosis
     Dosage: 12500 IU, 1X/DAY
     Dates: start: 20221220
  2. VALACYCLOVIR HYDROCHLORIDE [Concomitant]
     Active Substance: VALACYCLOVIR HYDROCHLORIDE
     Indication: Prophylaxis
     Dosage: 500 X2
     Dates: start: 2016
  3. CALCIUM CARBONATE\CHOLECALCIFEROL [Concomitant]
     Active Substance: CALCIUM CARBONATE\CHOLECALCIFEROL
     Indication: Prophylaxis
     Dosage: 500 MG/800 IU
     Dates: start: 2016
  4. CIPROFLOXACIN [Concomitant]
     Active Substance: CIPROFLOXACIN
     Indication: Infection
     Dosage: 500 MG, 2X/DAY
     Dates: start: 20230329, end: 20230408
  5. INNOVAIR [Concomitant]
     Active Substance: BECLOMETHASONE DIPROPIONATE\FORMOTEROL
     Dosage: UNK, INHALATION
  6. ALBUTEROL SULFATE [Concomitant]
     Active Substance: ALBUTEROL SULFATE
     Dosage: UNK, INHALATION
  7. LOSEC [Concomitant]
     Active Substance: OMEPRAZOLE
     Dosage: 40 MG X2
  8. NOXAFIL [Concomitant]
     Active Substance: POSACONAZOLE
     Indication: Fungal infection
     Dosage: WHEN NEEDED

REACTIONS (4)
  - Injection site pain [Not Recovered/Not Resolved]
  - Needle issue [Not Recovered/Not Resolved]
  - Device difficult to use [Not Recovered/Not Resolved]
  - Pyrexia [Unknown]

NARRATIVE: CASE EVENT DATE: 20230314
